FAERS Safety Report 13458262 (Version 2)
Quarter: 2017Q2

REPORT INFORMATION
  Report Type: Spontaneous
  Country: US (occurrence: US)
  Receive Date: 20170419
  Receipt Date: 20170630
  Transmission Date: 20170830
  Serious: Yes (Disabling, Other)
  Sender: FDA-Public Use
  Company Number: US-BAYER-2017-046350

PATIENT
  Age: 28 Year
  Sex: Female

DRUGS (7)
  1. DILAUDID [Concomitant]
     Active Substance: HYDROMORPHONE HYDROCHLORIDE
     Dosage: UNK
  2. CIPRO [Suspect]
     Active Substance: CIPROFLOXACIN HYDROCHLORIDE
     Dosage: UNK
  3. NITROFURANTOIN. [Concomitant]
     Active Substance: NITROFURANTOIN
     Dosage: UNK UNK, QD
     Dates: start: 20170123
  4. GABAPENTIN. [Concomitant]
     Active Substance: GABAPENTIN
     Dosage: UNK
  5. CIPRO [Suspect]
     Active Substance: CIPROFLOXACIN HYDROCHLORIDE
     Indication: URINARY TRACT INFECTION
     Dosage: UNK
     Dates: start: 20170119
  6. ENBREL [Concomitant]
     Active Substance: ETANERCEPT
     Dosage: UNK
  7. ROBAXIN [Concomitant]
     Active Substance: METHOCARBAMOL
     Dosage: UNK

REACTIONS (6)
  - Pain [None]
  - Back pain [None]
  - Muscle tightness [None]
  - Disability [Recovering/Resolving]
  - Arthralgia [None]
  - Spondyloarthropathy [None]

NARRATIVE: CASE EVENT DATE: 20170123
